FAERS Safety Report 7666187-2 (Version None)
Quarter: 2011Q3

REPORT INFORMATION
  Report Type: 
  Country: None (occurrence: None)
  Receive Date: 20110806
  Receipt Date: 20110421
  Transmission Date: 20111222
  Serious: No
  Sender: FDA-Public Use
  Company Number: US-ABBOTT-11P-163-0721161-00

PATIENT
  Age: 73 Year
  Sex: Male
  Weight: 65.83 kg

DRUGS (2)
  1. NIASPAN [Suspect]
     Indication: BLOOD CHOLESTEROL INCREASED
     Dates: start: 20090101, end: 20100101
  2. NIASPAN [Suspect]
     Dates: start: 20100101, end: 20100101

REACTIONS (1)
  - OEDEMA PERIPHERAL [None]
